FAERS Safety Report 6715454-5 (Version None)
Quarter: 2010Q2

REPORT INFORMATION
  Report Type: 
  Country: None (occurrence: None)
  Receive Date: 20100507
  Receipt Date: 20100427
  Transmission Date: 20101027
  Serious: Yes (Death)
  Sender: FDA-Public Use
  Company Number: JP-PFIZER INC-2010047002

PATIENT
  Age: 85 Year
  Sex: Male

DRUGS (1)
  1. SALAZOPYRIN [Suspect]
     Dosage: UNK
     Route: 054

REACTIONS (1)
  - PLATELET COUNT DECREASED [None]
